FAERS Safety Report 7824850-4 (Version None)
Quarter: 2011Q4

REPORT INFORMATION
  Report Type: 
  Country: None (occurrence: None)
  Receive Date: 20111019
  Receipt Date: 20110401
  Transmission Date: 20120403
  Serious: No
  Sender: FDA-Public Use
  Company Number: US-BRISTOL-MYERS SQUIBB COMPANY-15549389

PATIENT
  Age: 66 Year
  Sex: Female

DRUGS (4)
  1. AVALIDE [Suspect]
  2. METOPROLOL TARTRATE [Concomitant]
  3. VITAMIN TAB [Concomitant]
  4. SIMVASTATIN [Concomitant]

REACTIONS (1)
  - PAIN [None]
